FAERS Safety Report 5346130-1 (Version None)
Quarter: 2007Q2

REPORT INFORMATION
  Report Type: 
  Country: None (occurrence: None)
  Receive Date: 20070601
  Receipt Date: 20070521
  Transmission Date: 20071010
  Serious: Yes (Other)
  Sender: FDA-Public Use
  Company Number: 16612

PATIENT

DRUGS (8)
  1. DOXORUBICIN HCL [Suspect]
     Indication: HODGKIN'S DISEASE
  2. VINCRISTINE [Suspect]
     Indication: HODGKIN'S DISEASE
  3. ETOPOSIDE [Suspect]
     Indication: HODGKIN'S DISEASE
  4. BLEOMYCIN [Suspect]
     Indication: HODGKIN'S DISEASE
  5. CYCLOPHOSPHAMIDE [Suspect]
     Indication: HODGKIN'S DISEASE
  6. PREDNISONE TAB [Suspect]
     Indication: HODGKIN'S DISEASE
  7. PROCARBAZINE [Suspect]
     Indication: HODGKIN'S DISEASE
  8. RADIOTHERAPY [Suspect]
     Indication: HODGKIN'S DISEASE

REACTIONS (1)
  - ACUTE MYELOID LEUKAEMIA [None]
